FAERS Safety Report 21656557 (Version 1)
Quarter: 2022Q4

REPORT INFORMATION
  Report Type: Spontaneous
  Country: ID (occurrence: None)
  Receive Date: 20221129
  Receipt Date: 20221129
  Transmission Date: 20230113
  Serious: Yes (Other)
  Sender: FDA-Public Use
  Company Number: 2022A390464

PATIENT

DRUGS (1)
  1. SYMBICORT [Suspect]
     Active Substance: BUDESONIDE\FORMOTEROL FUMARATE DIHYDRATE
     Dosage: DOSE AND FREQUENCY UNKNOWN UNKNOWN
     Route: 055
     Dates: start: 202210, end: 202210

REACTIONS (3)
  - Haemoptysis [Unknown]
  - Cough [Unknown]
  - Device issue [Unknown]
